APPROVED DRUG PRODUCT: ATOMOXETINE HYDROCHLORIDE
Active Ingredient: ATOMOXETINE HYDROCHLORIDE
Strength: EQ 80MG BASE
Dosage Form/Route: CAPSULE;ORAL
Application: A202682 | Product #006 | TE Code: AB
Applicant: HETERO LABS LTD UNIT V
Approved: Mar 11, 2021 | RLD: No | RS: No | Type: RX